FAERS Safety Report 14876156 (Version 1)
Quarter: 2018Q2

REPORT INFORMATION
  Report Type: Spontaneous
  Country: DE (occurrence: DE)
  Receive Date: 20180510
  Receipt Date: 20180510
  Transmission Date: 20180711
  Serious: Yes (Other)
  Sender: FDA-Public Use
  Company Number: GXKR2007DE01832

PATIENT
  Age: 225 Month
  Sex: Male

DRUGS (2)
  1. VALPROATE SODIUM. [Suspect]
     Active Substance: VALPROATE SODIUM
     Indication: NEONATAL ASPHYXIA
     Route: 065
  2. PHENOBARBITONE [Concomitant]
     Active Substance: PHENOBARBITAL
     Indication: PRODUCT USED FOR UNKNOWN INDICATION
     Route: 065

REACTIONS (5)
  - Ammonia increased [Recovered/Resolved]
  - Vomiting [Recovered/Resolved]
  - Rhabdomyolysis [Unknown]
  - Liver disorder [Recovered/Resolved]
  - Fatigue [Recovered/Resolved]
